FAERS Safety Report 10359226 (Version 1)
Quarter: 2014Q3

REPORT INFORMATION
  Report Type: Spontaneous
  Country: US (occurrence: None)
  Receive Date: 20140731
  Receipt Date: 20140731
  Transmission Date: 20150326
  Serious: Yes (Other)
  Sender: FDA-Public Use
  Company Number: None

PATIENT
  Age: 72 Year
  Sex: Female
  Weight: 66.68 kg

DRUGS (1)
  1. TRAVATAN Z [Suspect]
     Active Substance: TRAVOPROST
     Indication: OCULAR HYPERTENSION
     Dosage: 1 DROP AT BEDTIME INTO THE EYE
     Dates: start: 20140620, end: 20140708

REACTIONS (7)
  - Hypertension [None]
  - Vision blurred [None]
  - Heart rate decreased [None]
  - Hypotension [None]
  - Corneal abrasion [None]
  - Photophobia [None]
  - Visual impairment [None]

NARRATIVE: CASE EVENT DATE: 20140620
